FAERS Safety Report 10361783 (Version 4)
Quarter: 2015Q1

REPORT INFORMATION
  Report Type: Spontaneous
  Country: US (occurrence: US)
  Receive Date: 20140805
  Receipt Date: 20150119
  Transmission Date: 20150720
  Serious: Yes (Hospitalization, Other)
  Sender: FDA-Public Use
  Company Number: US-AMGEN INC.-USASP2014058571

PATIENT
  Age: 72 Year
  Sex: Female

DRUGS (1)
  1. ENBREL [Suspect]
     Active Substance: ETANERCEPT
     Indication: RHEUMATOID ARTHRITIS
     Dosage: 50 MG, QWK
     Route: 065
     Dates: start: 20140725, end: 20141222

REACTIONS (6)
  - Diverticulum [Recovered/Resolved]
  - Malaise [Unknown]
  - Abdominal pain [Unknown]
  - Body temperature increased [Recovered/Resolved]
  - Cardiac disorder [Unknown]
  - Colonic abscess [Recovered/Resolved]

NARRATIVE: CASE EVENT DATE: 20140811
